FAERS Safety Report 6117059-6 (Version None)
Quarter: 2009Q1

REPORT INFORMATION
  Report Type: 
  Country: None (occurrence: None)
  Receive Date: 20090314
  Receipt Date: 20090106
  Transmission Date: 20090719
  Serious: No
  Sender: FDA-Public Use
  Company Number: US-ABBOTT-09P-163-0496174-00

PATIENT
  Sex: Female
  Weight: 88.984 kg

DRUGS (20)
  1. HUMIRA [Suspect]
     Indication: RHEUMATOID ARTHRITIS
     Dates: start: 20080416, end: 20090106
  2. PREVACID [Concomitant]
     Indication: DRUG USE FOR UNKNOWN INDICATION
  3. PREMARIN [Concomitant]
     Indication: DRUG USE FOR UNKNOWN INDICATION
  4. LYRICA [Concomitant]
     Indication: DRUG USE FOR UNKNOWN INDICATION
  5. ALPRAZOLA [Concomitant]
     Indication: INSOMNIA
     Dosage: 5 /325
  6. LINIGUM (?) [Concomitant]
     Indication: GLAUCOMA
     Dosage: 1 DROP EACH EYE
     Route: 047
  7. CLARINEX [Concomitant]
     Indication: DRUG USE FOR UNKNOWN INDICATION
  8. VITAMIN B-12 [Concomitant]
     Indication: DRUG USE FOR UNKNOWN INDICATION
  9. PYRIDOXINE HCL [Concomitant]
     Indication: DRUG USE FOR UNKNOWN INDICATION
  10. VITAMIN B COMPLEX CAP [Concomitant]
     Indication: DRUG USE FOR UNKNOWN INDICATION
  11. FLAXSEED OIL [Concomitant]
     Indication: DRUG USE FOR UNKNOWN INDICATION
  12. CALCI-D [Concomitant]
     Indication: DRUG USE FOR UNKNOWN INDICATION
  13. VIT C [Concomitant]
     Indication: DRUG USE FOR UNKNOWN INDICATION
  14. RESTASIS [Concomitant]
     Indication: DRY EYE
  15. FLONASE [Concomitant]
     Indication: DRUG USE FOR UNKNOWN INDICATION
     Dosage: 2 SPRAY
  16. DIAZIDE [Concomitant]
     Indication: DRUG USE FOR UNKNOWN INDICATION
  17. DARVOCET-N 100 [Concomitant]
     Indication: DRUG USE FOR UNKNOWN INDICATION
  18. ALPHAGAN [Concomitant]
     Indication: DRUG USE FOR UNKNOWN INDICATION
     Dosage: 1% 1 EACH EYE TWICE A DAY
  19. NUMOY [Concomitant]
     Indication: DRUG USE FOR UNKNOWN INDICATION
     Dosage: PRN
  20. MURO-128 [Concomitant]
     Indication: GLAUCOMA

REACTIONS (8)
  - EYE INFECTION [None]
  - GLAUCOMA [None]
  - ORAL INFECTION [None]
  - PRURITUS [None]
  - RASH [None]
  - SKIN EXFOLIATION [None]
  - TOOTHACHE [None]
  - URINARY TRACT INFECTION [None]
